FAERS Safety Report 5298975-4 (Version None)
Quarter: 2007Q2

REPORT INFORMATION
  Report Type: 
  Country: None (occurrence: None)
  Receive Date: 20070412
  Receipt Date: 20070412
  Transmission Date: 20071010
  Serious: No
  Sender: FDA-Public Use
  Company Number: None

PATIENT
  Age: 16 Year
  Sex: Male
  Weight: 69 kg

DRUGS (1)
  1. REMICADE [Suspect]
     Indication: COLITIS ULCERATIVE
     Dosage: 300 MG Q 8 WEEKS IV DRIP
     Route: 041
     Dates: start: 20070208, end: 20070208

REACTIONS (1)
  - UNEVALUABLE EVENT [None]
